FAERS Safety Report 8784657 (Version 2)
Quarter: 2012Q4

REPORT INFORMATION
  Report Type: Spontaneous
  Country: US (occurrence: None)
  Receive Date: 20120827
  Receipt Date: 20120904
  Transmission Date: 20130627
  Serious: Yes (Other)
  Sender: FDA-Public Use
  Company Number: ACO_24807_2011

PATIENT
  Age: 80 Year
  Sex: Male
  Weight: 99.8 kg

DRUGS (12)
  1. AMPYRA [Suspect]
     Indication: GAIT DISTURBANCE
     Route: 048
     Dates: start: 201105, end: 201105
  2. AMPYRA [Suspect]
     Indication: GAIT DISTURBANCE
     Route: 048
     Dates: start: 2011
  3. SINEMET (CARBIDOPA, LEVODOPA) [Concomitant]
  4. OMEPRAZOLE (OMEPRAZOLE) [Concomitant]
  5. TRIMETHOPRIM [Concomitant]
  6. CYMBALTA (DULOXETINE HYDROCHLORIDE) [Concomitant]
  7. FLOMAX /00889901/ (MORNIFLUMATE) [Concomitant]
  8. NORVASC (AMLODIPINE BESILATE) [Concomitant]
  9. ARICEPT (DONEPEZIL HYDROCHLORIDE) [Concomitant]
  10. VITAMIN D /00107901/ (ERGOCALCIFEROL) [Concomitant]
  11. ALLOPURINOL (ALLOPURINOL) [Concomitant]
  12. LASIX [Concomitant]

REACTIONS (12)
  - Convulsion [None]
  - Nervous system disorder [None]
  - Gait disturbance [None]
  - Nausea [None]
  - Therapeutic response unexpected [None]
  - Condition aggravated [None]
  - Creatinine renal clearance increased [None]
  - Hyperhidrosis [None]
  - Pallor [None]
  - Retching [None]
  - General physical health deterioration [None]
  - Disease progression [None]
